FAERS Safety Report 21320678 (Version 2)
Quarter: 2022Q3

REPORT INFORMATION
  Report Type: Spontaneous
  Country: PG (occurrence: PG)
  Receive Date: 20220912
  Receipt Date: 20220912
  Transmission Date: 20221026
  Serious: Yes (Other)
  Sender: FDA-Public Use
  Company Number: PG-JNJFOC-20200338048

PATIENT
  Age: 25 Year
  Sex: Female
  Weight: 56 kg

DRUGS (9)
  1. BEDAQUILINE [Suspect]
     Active Substance: BEDAQUILINE
     Indication: Tuberculosis
     Route: 048
     Dates: start: 20190328, end: 20190925
  2. BEDAQUILINE [Suspect]
     Active Substance: BEDAQUILINE
     Route: 048
     Dates: start: 20190925
  3. LEVOFLOXACIN [Suspect]
     Active Substance: LEVOFLOXACIN
     Indication: Tuberculosis
     Route: 048
     Dates: start: 20190328
  4. LINEZOLID [Suspect]
     Active Substance: LINEZOLID
     Indication: Tuberculosis
     Route: 048
     Dates: start: 20190328
  5. CYCLOSERINE [Suspect]
     Active Substance: CYCLOSERINE
     Indication: Tuberculosis
     Route: 048
     Dates: start: 20190328
  6. LAMIVUDINE\TENOFOVIR [Suspect]
     Active Substance: LAMIVUDINE\TENOFOVIR
     Indication: HIV infection
     Dosage: 300+300 MG
     Route: 048
     Dates: start: 20190328, end: 20190925
  7. NEVIRAPINE [Suspect]
     Active Substance: NEVIRAPINE
     Indication: HIV infection
     Route: 048
     Dates: start: 20190328, end: 20190925
  8. SULFAMETHOXAZOLE\TRIMETHOPRIM [Suspect]
     Active Substance: SULFAMETHOXAZOLE\TRIMETHOPRIM
     Indication: HIV infection
     Route: 048
     Dates: start: 20190328, end: 20190925
  9. EFAVIRENZ\LAMIVUDINE\TENOFOVIR DISOPROXIL FUMARATE [Suspect]
     Active Substance: EFAVIRENZ\LAMIVUDINE\TENOFOVIR DISOPROXIL FUMARATE
     Indication: HIV infection
     Dosage: 300+300+600 MG
     Route: 048
     Dates: start: 20190925

REACTIONS (10)
  - Foetal death [Recovered/Resolved with Sequelae]
  - Postpartum haemorrhage [Unknown]
  - Anaemia [Recovering/Resolving]
  - Liver function test increased [Unknown]
  - Hypomagnesaemia [Unknown]
  - Eosinophilia [Unknown]
  - Exposure during pregnancy [Recovered/Resolved]
  - Intentional product use issue [Unknown]
  - Inappropriate schedule of product administration [Unknown]
  - Off label use [Unknown]

NARRATIVE: CASE EVENT DATE: 20190101
